FAERS Safety Report 6736769-0 (Version None)
Quarter: 2010Q2

REPORT INFORMATION
  Report Type: 
  Country: None (occurrence: None)
  Receive Date: 20100521
  Receipt Date: 20100513
  Transmission Date: 20101027
  Serious: Yes (Life-Threatening, Hospitalization)
  Sender: FDA-Public Use
  Company Number: FR-KINGPHARMUSA00001-K201000506

PATIENT
  Age: 75 Year

DRUGS (3)
  1. ALTACE [Suspect]
     Dosage: 5 MG, QD
     Route: 048
     Dates: start: 20040101
  2. LACIPIL [Suspect]
     Indication: HYPERTENSION
     Dosage: 4 MG, QD
     Route: 048
     Dates: start: 20040101
  3. ESTRACYT [Suspect]
     Dosage: 4 U, QD
     Route: 048
     Dates: start: 20080101

REACTIONS (8)
  - ASPHYXIA [None]
  - BLOOD GLUCOSE INCREASED [None]
  - DRUG INTERACTION [None]
  - EPIGLOTTIC OEDEMA [None]
  - LARYNGEAL OEDEMA [None]
  - PHARYNGEAL OEDEMA [None]
  - RED BLOOD CELL SEDIMENTATION RATE INCREASED [None]
  - TONGUE OEDEMA [None]
